FAERS Safety Report 19169234 (Version 1)
Quarter: 2021Q2

REPORT INFORMATION
  Report Type: Report from Study
  Country: US (occurrence: US)
  Receive Date: 20210422
  Receipt Date: 20210422
  Transmission Date: 20210717
  Serious: Yes (Death, Hospitalization, Other)
  Sender: FDA-Public Use
  Company Number: US-TAKEDA-US201933500

PATIENT
  Sex: Male

DRUGS (1)
  1. CUVITRU [Suspect]
     Active Substance: HUMAN IMMUNOGLOBULIN G
     Indication: IMMUNODEFICIENCY COMMON VARIABLE
     Route: 065

REACTIONS (6)
  - Cardiac disorder [Unknown]
  - Myocardial infarction [Fatal]
  - Chronic obstructive pulmonary disease [Unknown]
  - Coronary arterial stent insertion [Unknown]
  - Thrombosis [Fatal]
  - Dyspnoea [Unknown]
